FAERS Safety Report 22234913 (Version 1)
Quarter: 2023Q2

REPORT INFORMATION
  Report Type: Report from Study
  Country: US (occurrence: US)
  Receive Date: 20230420
  Receipt Date: 20230420
  Transmission Date: 20230722
  Serious: Yes (Other)
  Sender: FDA-Public Use
  Company Number: US-TAKEDA-2022TUS034623

PATIENT
  Sex: Male

DRUGS (1)
  1. VEDOLIZUMAB [Suspect]
     Active Substance: VEDOLIZUMAB
     Indication: Colitis ulcerative
     Dosage: 300 MILLIGRAM, Q6WEEKS
     Route: 042

REACTIONS (10)
  - Cerebrovascular accident [Unknown]
  - Atrial fibrillation [Unknown]
  - Anxiety [Unknown]
  - Inappropriate schedule of product administration [Unknown]
  - Emotional distress [Unknown]
  - Feeling abnormal [Unknown]
  - Depressed mood [Unknown]
  - Frequent bowel movements [Unknown]
  - Hernia [Unknown]
  - Off label use [Unknown]
